FAERS Safety Report 13348816 (Version 2)
Quarter: 2018Q1

REPORT INFORMATION
  Report Type: Spontaneous
  Country: US (occurrence: US)
  Receive Date: 20170320
  Receipt Date: 20180320
  Transmission Date: 20180508
  Serious: No
  Sender: FDA-Public Use
  Company Number: US-TEVA-738263ACC

PATIENT
  Sex: Female

DRUGS (1)
  1. NORTRIPTYLINE [Suspect]
     Active Substance: NORTRIPTYLINE
     Dosage: 1 DOSAGE FORMS DAILY;

REACTIONS (3)
  - Paraesthesia [Unknown]
  - Therapeutic response unexpected [Unknown]
  - Insomnia [Unknown]
